FAERS Safety Report 6927421-7 (Version None)
Quarter: 2010Q3

REPORT INFORMATION
  Report Type: 
  Country: None (occurrence: None)
  Receive Date: 20100812
  Receipt Date: 20100809
  Transmission Date: 20110219
  Serious: Yes (Hospitalization)
  Sender: FDA-Public Use
  Company Number: S04-USA-02764-01

PATIENT
  Age: 92 Year
  Sex: Female

DRUGS (5)
  1. NAMENDA [Suspect]
     Indication: DEMENTIA ALZHEIMER'S TYPE
     Dosage: ORAL, 20 MG (10 MG, 2 IN 1 D), ORAL
     Route: 048
     Dates: start: 20030101
  2. NAMENDA [Suspect]
     Indication: DEMENTIA ALZHEIMER'S TYPE
     Dosage: 5 MG AM/10 MG PM, ORAL
     Route: 048
  3. ARICEPT [Concomitant]
  4. OTHER MEDICATIONS (NOS) [Concomitant]
  5. ATIVAN [Concomitant]

REACTIONS (4)
  - BLOOD PRESSURE INCREASED [None]
  - HALLUCINATION, VISUAL [None]
  - SOMNOLENCE [None]
  - SYNCOPE [None]
